FAERS Safety Report 16692369 (Version 2)
Quarter: 2019Q3

REPORT INFORMATION
  Report Type: Spontaneous
  Country: US (occurrence: US)
  Receive Date: 20190812
  Receipt Date: 20190923
  Transmission Date: 20191004
  Serious: No
  Sender: FDA-Public Use
  Company Number: US-PFIZER INC-2019340522

PATIENT
  Age: 55 Year

DRUGS (1)
  1. LYRICA [Suspect]
     Active Substance: PREGABALIN
     Dosage: 100 MG, 3X/DAY (#90 100 MG THREE TIMES DAILY)

REACTIONS (2)
  - Burning sensation [Unknown]
  - Back pain [Unknown]

NARRATIVE: CASE EVENT DATE: 20190805
